FAERS Safety Report 9130181 (Version 1)
Quarter: 2013Q1

REPORT INFORMATION
  Report Type: Spontaneous
  Country: US (occurrence: US)
  Receive Date: 20130228
  Receipt Date: 20130228
  Transmission Date: 20140127
  Serious: Yes (Hospitalization, Other)
  Sender: FDA-Public Use
  Company Number: US-ABBOTT-12P-163-1001076-00

PATIENT
  Age: 73 Year
  Sex: Male

DRUGS (100)
  1. NIASPAN (COATED) [Suspect]
     Indication: PRODUCT USED FOR UNKNOWN INDICATION
  2. GLIMEPIRIDE [Suspect]
     Indication: TYPE 2 DIABETES MELLITUS
     Dates: start: 20120523
  3. PLACEBO [Suspect]
     Indication: TYPE 2 DIABETES MELLITUS
     Dates: start: 20100509
  4. COUMADIN [Suspect]
     Indication: PRODUCT USED FOR UNKNOWN INDICATION
  5. DABIGATRAN ETEXILATE [Suspect]
     Indication: PRODUCT USED FOR UNKNOWN INDICATION
     Dates: start: 20120510
  6. ASPIRIN [Suspect]
     Indication: PRODUCT USED FOR UNKNOWN INDICATION
  7. SAXAGLIPTIN [Suspect]
     Indication: TYPE 2 DIABETES MELLITUS
     Dates: start: 20101109
  8. METFORMIN HYDROCHLORIDE [Suspect]
     Indication: TYPE 2 DIABETES MELLITUS
  9. PLAVIX [Suspect]
     Indication: PRODUCT USED FOR UNKNOWN INDICATION
  10. ADF ANTAGONIST [Concomitant]
     Indication: PRODUCT USED FOR UNKNOWN INDICATION
  11. ADF ANTAGONIST [Concomitant]
     Indication: PRODUCT USED FOR UNKNOWN INDICATION
  12. ADF ANTAGONIST [Concomitant]
     Indication: PRODUCT USED FOR UNKNOWN INDICATION
  13. ADF ANTAGONIST [Concomitant]
     Indication: PRODUCT USED FOR UNKNOWN INDICATION
  14. ADF ANTAGONIST [Concomitant]
     Indication: PRODUCT USED FOR UNKNOWN INDICATION
  15. ADF ANTAGONIST [Concomitant]
     Indication: PRODUCT USED FOR UNKNOWN INDICATION
  16. ADF ANTAGONIST [Concomitant]
     Indication: PRODUCT USED FOR UNKNOWN INDICATION
  17. ADF ANTAGONIST [Concomitant]
     Indication: PRODUCT USED FOR UNKNOWN INDICATION
  18. ADF ANTAGONIST [Concomitant]
     Indication: PRODUCT USED FOR UNKNOWN INDICATION
  19. BETA BLOCKERS [Concomitant]
     Indication: PRODUCT USED FOR UNKNOWN INDICATION
  20. BETA BLOCKERS [Concomitant]
     Indication: PRODUCT USED FOR UNKNOWN INDICATION
  21. BETA BLOCKERS [Concomitant]
     Indication: PRODUCT USED FOR UNKNOWN INDICATION
  22. BETA BLOCKERS [Concomitant]
     Indication: PRODUCT USED FOR UNKNOWN INDICATION
  23. BETA BLOCKERS [Concomitant]
     Indication: PRODUCT USED FOR UNKNOWN INDICATION
  24. BETA BLOCKERS [Concomitant]
     Indication: PRODUCT USED FOR UNKNOWN INDICATION
  25. BETA BLOCKERS [Concomitant]
     Indication: PRODUCT USED FOR UNKNOWN INDICATION
  26. BETA BLOCKERS [Concomitant]
     Indication: PRODUCT USED FOR UNKNOWN INDICATION
  27. BETA BLOCKERS [Concomitant]
     Indication: PRODUCT USED FOR UNKNOWN INDICATION
  28. STATIN [Concomitant]
     Indication: PRODUCT USED FOR UNKNOWN INDICATION
  29. STATIN [Concomitant]
     Indication: PRODUCT USED FOR UNKNOWN INDICATION
  30. STATIN [Concomitant]
     Indication: PRODUCT USED FOR UNKNOWN INDICATION
  31. STATIN [Concomitant]
     Indication: PRODUCT USED FOR UNKNOWN INDICATION
  32. STATIN [Concomitant]
     Indication: PRODUCT USED FOR UNKNOWN INDICATION
  33. STATIN [Concomitant]
     Indication: PRODUCT USED FOR UNKNOWN INDICATION
  34. STATIN [Concomitant]
     Indication: PRODUCT USED FOR UNKNOWN INDICATION
  35. STATIN [Concomitant]
     Indication: PRODUCT USED FOR UNKNOWN INDICATION
  36. STATIN [Concomitant]
     Indication: PRODUCT USED FOR UNKNOWN INDICATION
  37. FIBRIC ACID [Concomitant]
     Indication: PRODUCT USED FOR UNKNOWN INDICATION
  38. FIBRIC ACID [Concomitant]
     Indication: PRODUCT USED FOR UNKNOWN INDICATION
  39. FIBRIC ACID [Concomitant]
     Indication: PRODUCT USED FOR UNKNOWN INDICATION
  40. FIBRIC ACID [Concomitant]
     Indication: PRODUCT USED FOR UNKNOWN INDICATION
  41. FIBRIC ACID [Concomitant]
     Indication: PRODUCT USED FOR UNKNOWN INDICATION
  42. FIBRIC ACID [Concomitant]
     Indication: PRODUCT USED FOR UNKNOWN INDICATION
  43. FIBRIC ACID [Concomitant]
     Indication: PRODUCT USED FOR UNKNOWN INDICATION
  44. FIBRIC ACID [Concomitant]
     Indication: PRODUCT USED FOR UNKNOWN INDICATION
  45. FIBRIC ACID [Concomitant]
     Indication: PRODUCT USED FOR UNKNOWN INDICATION
  46. ANGIOTENSION RECEPTOR BLOCKERS [Concomitant]
     Indication: PRODUCT USED FOR UNKNOWN INDICATION
  47. ANGIOTENSION RECEPTOR BLOCKERS [Concomitant]
     Indication: PRODUCT USED FOR UNKNOWN INDICATION
  48. ANGIOTENSION RECEPTOR BLOCKERS [Concomitant]
     Indication: PRODUCT USED FOR UNKNOWN INDICATION
  49. ANGIOTENSION RECEPTOR BLOCKERS [Concomitant]
     Indication: PRODUCT USED FOR UNKNOWN INDICATION
  50. ANGIOTENSION RECEPTOR BLOCKERS [Concomitant]
     Indication: PRODUCT USED FOR UNKNOWN INDICATION
  51. ANGIOTENSION RECEPTOR BLOCKERS [Concomitant]
     Indication: PRODUCT USED FOR UNKNOWN INDICATION
  52. ANGIOTENSION RECEPTOR BLOCKERS [Concomitant]
     Indication: PRODUCT USED FOR UNKNOWN INDICATION
  53. ANGIOTENSION RECEPTOR BLOCKERS [Concomitant]
     Indication: PRODUCT USED FOR UNKNOWN INDICATION
  54. ANGIOTENSION RECEPTOR BLOCKERS [Concomitant]
     Indication: PRODUCT USED FOR UNKNOWN INDICATION
  55. CALCIUM ANTAGONIST [Concomitant]
     Indication: PRODUCT USED FOR UNKNOWN INDICATION
  56. CALCIUM ANTAGONIST [Concomitant]
     Indication: PRODUCT USED FOR UNKNOWN INDICATION
  57. CALCIUM ANTAGONIST [Concomitant]
     Indication: PRODUCT USED FOR UNKNOWN INDICATION
  58. CALCIUM ANTAGONIST [Concomitant]
     Indication: PRODUCT USED FOR UNKNOWN INDICATION
  59. CALCIUM ANTAGONIST [Concomitant]
     Indication: PRODUCT USED FOR UNKNOWN INDICATION
  60. CALCIUM ANTAGONIST [Concomitant]
     Indication: PRODUCT USED FOR UNKNOWN INDICATION
  61. CALCIUM ANTAGONIST [Concomitant]
     Indication: PRODUCT USED FOR UNKNOWN INDICATION
  62. CALCIUM ANTAGONIST [Concomitant]
     Indication: PRODUCT USED FOR UNKNOWN INDICATION
  63. CALCIUM ANTAGONIST [Concomitant]
     Indication: PRODUCT USED FOR UNKNOWN INDICATION
  64. DIURETICS [Concomitant]
     Indication: PRODUCT USED FOR UNKNOWN INDICATION
  65. DIURETICS [Concomitant]
     Indication: PRODUCT USED FOR UNKNOWN INDICATION
  66. DIURETICS [Concomitant]
     Indication: PRODUCT USED FOR UNKNOWN INDICATION
  67. DIURETICS [Concomitant]
     Indication: PRODUCT USED FOR UNKNOWN INDICATION
  68. DIURETICS [Concomitant]
     Indication: PRODUCT USED FOR UNKNOWN INDICATION
  69. DIURETICS [Concomitant]
     Indication: PRODUCT USED FOR UNKNOWN INDICATION
  70. DIURETICS [Concomitant]
     Indication: PRODUCT USED FOR UNKNOWN INDICATION
  71. DIURETICS [Concomitant]
     Indication: PRODUCT USED FOR UNKNOWN INDICATION
  72. DIURETICS [Concomitant]
     Indication: PRODUCT USED FOR UNKNOWN INDICATION
  73. NITRATES [Concomitant]
     Indication: PRODUCT USED FOR UNKNOWN INDICATION
  74. NITRATES [Concomitant]
     Indication: PRODUCT USED FOR UNKNOWN INDICATION
  75. NITRATES [Concomitant]
     Indication: PRODUCT USED FOR UNKNOWN INDICATION
  76. NITRATES [Concomitant]
     Indication: PRODUCT USED FOR UNKNOWN INDICATION
  77. NITRATES [Concomitant]
     Indication: PRODUCT USED FOR UNKNOWN INDICATION
  78. NITRATES [Concomitant]
     Indication: PRODUCT USED FOR UNKNOWN INDICATION
  79. NITRATES [Concomitant]
     Indication: PRODUCT USED FOR UNKNOWN INDICATION
  80. NITRATES [Concomitant]
     Indication: PRODUCT USED FOR UNKNOWN INDICATION
  81. NITRATES [Concomitant]
     Indication: PRODUCT USED FOR UNKNOWN INDICATION
  82. ANTI COAGULANTS [Concomitant]
     Indication: PRODUCT USED FOR UNKNOWN INDICATION
  83. ANTI COAGULANTS [Concomitant]
     Indication: PRODUCT USED FOR UNKNOWN INDICATION
  84. ANTI COAGULANTS [Concomitant]
     Indication: PRODUCT USED FOR UNKNOWN INDICATION
  85. ANTI COAGULANTS [Concomitant]
     Indication: PRODUCT USED FOR UNKNOWN INDICATION
  86. ANTI COAGULANTS [Concomitant]
     Indication: PRODUCT USED FOR UNKNOWN INDICATION
  87. ANTI COAGULANTS [Concomitant]
     Indication: PRODUCT USED FOR UNKNOWN INDICATION
  88. ANTI COAGULANTS [Concomitant]
     Indication: PRODUCT USED FOR UNKNOWN INDICATION
  89. ANTI COAGULANTS [Concomitant]
     Indication: PRODUCT USED FOR UNKNOWN INDICATION
  90. ANTI COAGULANTS [Concomitant]
     Indication: PRODUCT USED FOR UNKNOWN INDICATION
  91. ARRHYTHMIC AGENTS [Concomitant]
     Indication: PRODUCT USED FOR UNKNOWN INDICATION
  92. ARRHYTHMIC AGENTS [Concomitant]
     Indication: PRODUCT USED FOR UNKNOWN INDICATION
  93. ARRHYTHMIC AGENTS [Concomitant]
     Indication: PRODUCT USED FOR UNKNOWN INDICATION
  94. ARRHYTHMIC AGENTS [Concomitant]
     Indication: PRODUCT USED FOR UNKNOWN INDICATION
  95. ARRHYTHMIC AGENTS [Concomitant]
     Indication: PRODUCT USED FOR UNKNOWN INDICATION
  96. ARRHYTHMIC AGENTS [Concomitant]
     Indication: PRODUCT USED FOR UNKNOWN INDICATION
  97. ARRHYTHMIC AGENTS [Concomitant]
     Indication: PRODUCT USED FOR UNKNOWN INDICATION
  98. ARRHYTHMIC AGENTS [Concomitant]
     Indication: PRODUCT USED FOR UNKNOWN INDICATION
  99. ARRHYTHMIC AGENTS [Concomitant]
     Indication: PRODUCT USED FOR UNKNOWN INDICATION
  100. RANOLAZINE HYDROCHLORIDE [Concomitant]
     Indication: PRODUCT USED FOR UNKNOWN INDICATION
     Dates: start: 20121101

REACTIONS (5)
  - Upper gastrointestinal haemorrhage [Recovered/Resolved]
  - Impaired gastric emptying [Unknown]
  - Gastric ulcer [Unknown]
  - Upper gastrointestinal haemorrhage [Recovered/Resolved]
  - Large intestine polyp [Unknown]
